FAERS Safety Report 8914632 (Version 1)
Quarter: 2012Q4

REPORT INFORMATION
  Report Type: 
  Country: US (occurrence: US)
  Receive Date: 20121119
  Receipt Date: 20121119
  Transmission Date: 20130627
  Serious: No
  Sender: FDA-Public Use
  Company Number: US-ASTRAZENECA-2012SE80565

PATIENT
  Age: 65 Year
  Sex: Female

DRUGS (3)
  1. SYMBICORT PMDI [Suspect]
     Route: 055
  2. NEXIUM [Suspect]
     Dosage: TWICE DAILY
     Route: 048
  3. NEXIUM [Suspect]
     Dosage: ONCE
     Route: 048

REACTIONS (4)
  - Gastrooesophageal reflux disease [Unknown]
  - Asthma [Unknown]
  - Intentional drug misuse [Unknown]
  - Drug dose omission [Unknown]
